FAERS Safety Report 9079601 (Version 1)
Quarter: 2013Q1

REPORT INFORMATION
  Report Type: Report from Study
  Country: PL (occurrence: PL)
  Receive Date: 20130130
  Receipt Date: 20130130
  Transmission Date: 20140127
  Serious: Yes (Other)
  Sender: FDA-Public Use
  Company Number: PL-ROCHE-1184558

PATIENT
  Sex: Female

DRUGS (3)
  1. HERCEPTIN [Suspect]
     Indication: BREAST CANCER
     Route: 065
  2. XELODA [Suspect]
     Indication: BREAST CANCER
     Route: 065
  3. TAMOXIFEN [Concomitant]

REACTIONS (2)
  - Ejection fraction decreased [Recovering/Resolving]
  - Palmar-plantar erythrodysaesthesia syndrome [Unknown]
